FAERS Safety Report 19258166 (Version 2)
Quarter: 2021Q3

REPORT INFORMATION
  Report Type: Report from Study
  Country: CA (occurrence: CA)
  Receive Date: 20210514
  Receipt Date: 20210730
  Transmission Date: 20211014
  Serious: Yes (Other)
  Sender: FDA-Public Use
  Company Number: CA-BAYER-2021-135336

PATIENT
  Sex: Female

DRUGS (5)
  1. NAPROXEN. [Concomitant]
     Active Substance: NAPROXEN
     Indication: JUVENILE IDIOPATHIC ARTHRITIS
     Dosage: 2 DF, QD
     Route: 058
  2. ENBREL [Concomitant]
     Active Substance: ETANERCEPT
     Indication: JUVENILE IDIOPATHIC ARTHRITIS
     Dosage: 1 DF, OW
     Route: 058
  3. CIPROFLOXACIN. [Suspect]
     Active Substance: CIPROFLOXACIN
     Indication: JUVENILE IDIOPATHIC ARTHRITIS
     Dosage: UNK
     Route: 065
  4. METHOTREXATE. [Suspect]
     Active Substance: METHOTREXATE
     Indication: JUVENILE IDIOPATHIC ARTHRITIS
     Dosage: 1 DF, OW
     Route: 058
  5. LEFLUNOMIDE. [Suspect]
     Active Substance: LEFLUNOMIDE
     Indication: JUVENILE IDIOPATHIC ARTHRITIS
     Dosage: 1 DF, QD
     Route: 065

REACTIONS (11)
  - Cough [Unknown]
  - Nodule [Unknown]
  - Gastrointestinal disorder [Unknown]
  - Off label use [Unknown]
  - Drug hypersensitivity [Unknown]
  - Juvenile idiopathic arthritis [Unknown]
  - Swelling [Unknown]
  - Product use issue [Unknown]
  - Stress [Unknown]
  - Drug ineffective for unapproved indication [Unknown]
  - Pyrexia [Unknown]
